FAERS Safety Report 6159236-4 (Version None)
Quarter: 2009Q2

REPORT INFORMATION
  Report Type: 
  Country: None (occurrence: None)
  Receive Date: 20090417
  Receipt Date: 20090406
  Transmission Date: 20091009
  Serious: Yes (Other)
  Sender: FDA-Public Use
  Company Number: US-PFIZER INC-2009198585

PATIENT
  Sex: Female
  Weight: 70.748 kg

DRUGS (3)
  1. CHANTIX [Suspect]
     Indication: SMOKING CESSATION THERAPY
     Dosage: UNK
     Route: 048
     Dates: start: 20090319
  2. BENADRYL [Concomitant]
     Indication: HYPERSENSITIVITY
     Dosage: UNK
  3. ADVAIR HFA [Concomitant]
     Dosage: UNK

REACTIONS (1)
  - HOMICIDAL IDEATION [None]
